FAERS Safety Report 10622118 (Version 1)
Quarter: 2014Q4

REPORT INFORMATION
  Report Type: Spontaneous
  Country: US (occurrence: None)
  Receive Date: 20141201
  Receipt Date: 20141201
  Transmission Date: 20150529
  Serious: No
  Sender: FDA-Public Use
  Company Number: None

PATIENT
  Age: 60 Year
  Sex: Male
  Weight: 86.4 kg

DRUGS (1)
  1. WARFARIN [Suspect]
     Active Substance: WARFARIN
     Dosage: MG PO
     Route: 048
     Dates: start: 20140903, end: 20140916

REACTIONS (5)
  - Ankle fracture [None]
  - International normalised ratio increased [None]
  - Pulmonary embolism [None]
  - Dizziness [None]
  - Hip fracture [None]

NARRATIVE: CASE EVENT DATE: 20140922
